FAERS Safety Report 8790018 (Version 2)
Quarter: 2013Q1

REPORT INFORMATION
  Report Type: Report from Study
  Country: JP (occurrence: JP)
  Receive Date: 20120917
  Receipt Date: 20130322
  Transmission Date: 20140127
  Serious: Yes (Hospitalization)
  Sender: FDA-Public Use
  Company Number: JP-VERTEX PHARMACEUTICAL INC.-2012-020971

PATIENT
  Age: 69 Year
  Sex: Female

DRUGS (10)
  1. VX-950 (TELAPREVIR) [Suspect]
     Indication: CHRONIC HEPATITIS C
     Dosage: 1500 MG, QD
     Route: 048
     Dates: start: 20120531, end: 20120729
  2. RIBAVIRIN [Suspect]
     Indication: CHRONIC HEPATITIS C
     Dosage: 400 MG, QD
     Route: 048
     Dates: start: 20120531, end: 20120704
  3. RIBAVIRIN [Suspect]
     Dosage: 200 MG, QD
     Route: 048
     Dates: start: 20120705
  4. PEGINTERFERON ALFA-2B [Suspect]
     Indication: CHRONIC HEPATITIS C
     Dosage: 60 ?G, QW
     Route: 058
     Dates: start: 20120531, end: 20120704
  5. PEGINTERFERON ALFA-2B [Suspect]
     Dosage: 50 ?G, QW
     Route: 058
     Dates: start: 20120705, end: 20120729
  6. PEGINTERFERON ALFA-2B [Suspect]
     Dosage: 50 ?G, QW
     Route: 058
     Dates: start: 20120809, end: 20120815
  7. PEGINTERFERON ALFA-2B [Suspect]
     Dosage: 30 ?G, QW
     Route: 058
     Dates: start: 20120816
  8. AMLODIN [Concomitant]
     Dosage: 2.5 MG, QD
     Route: 048
  9. METHYCOBAL [Concomitant]
     Dosage: 1500 ?G, QD
     Route: 048
  10. THYRADIN S [Concomitant]
     Dosage: 100 ?G, QD
     Route: 048

REACTIONS (1)
  - Malaise [Not Recovered/Not Resolved]
